FAERS Safety Report 10473765 (Version 1)
Quarter: 2014Q3

REPORT INFORMATION
  Report Type: Spontaneous
  Country: US (occurrence: US)
  Receive Date: 20140924
  Receipt Date: 20140924
  Transmission Date: 20150326
  Serious: Yes (Hospitalization)
  Sender: FDA-Public Use
  Company Number: PHHY2014US120927

PATIENT
  Age: 15 Year
  Sex: Male

DRUGS (1)
  1. HALOPERIDOL. [Suspect]
     Active Substance: HALOPERIDOL
     Indication: SEDATIVE THERAPY
     Dosage: 5 MG EACH 2 SEPARATE DOSES
     Route: 042

REACTIONS (4)
  - Cognitive disorder [Recovering/Resolving]
  - Motor dysfunction [Recovering/Resolving]
  - Unresponsive to stimuli [Recovering/Resolving]
  - Hypokinesia [Recovering/Resolving]
